FAERS Safety Report 25099159 (Version 1)
Quarter: 2025Q1

REPORT INFORMATION
  Report Type: Spontaneous
  Country: DE (occurrence: DE)
  Receive Date: 20250320
  Receipt Date: 20250320
  Transmission Date: 20250408
  Serious: Yes (Other)
  Sender: MYLAN
  Company Number: DE-MYLANLABS-2025M1022196

PATIENT
  Age: 6 Month
  Sex: Female

DRUGS (5)
  1. CYCLOSPORINE [Suspect]
     Active Substance: CYCLOSPORINE
     Indication: Prophylaxis against transplant rejection
  2. PREDNISOLONE [Suspect]
     Active Substance: PREDNISOLONE
     Indication: Prophylaxis against transplant rejection
  3. PIPERACILLIN [Concomitant]
     Active Substance: PIPERACILLIN
     Indication: Cholangitis
  4. TAZOBACTAM [Concomitant]
     Active Substance: TAZOBACTAM
     Indication: Cholangitis
  5. MEROPENEM [Concomitant]
     Active Substance: MEROPENEM
     Indication: Cholangitis

REACTIONS (1)
  - Drug ineffective [Unknown]
